FAERS Safety Report 6956009-7 (Version None)
Quarter: 2010Q3

REPORT INFORMATION
  Report Type: 
  Country: None (occurrence: None)
  Receive Date: 20100826
  Receipt Date: 20100818
  Transmission Date: 20110219
  Serious: Yes (Hospitalization, Disabling)
  Sender: FDA-Public Use
  Company Number: 2010JP004938

PATIENT
  Age: 50 Year
  Sex: Male
  Weight: 57 kg

DRUGS (7)
  1. PROGRAF [Suspect]
     Indication: RHEUMATOID ARTHRITIS
     Dosage: 1.5 MG, UID/QD, ORAL
     Route: 048
     Dates: start: 20100401, end: 20100501
  2. SOSEGON (PENTAZOCINE) INJECTION [Suspect]
     Indication: SHORT-BOWEL SYNDROME
     Dosage: 15 MG, BID, INTRAMUSCULAR
     Route: 030
     Dates: start: 20000101
  3. OMEPRAL (OMEPRAZOLE) TABLET [Concomitant]
  4. ADALAT L (NIFEDIPINE) TABLET [Concomitant]
  5. ALFAROL (ALFACALCIDOL) CAPSULE [Concomitant]
  6. DIOVAN [Concomitant]
  7. CALTAN (CALCIUM CARBONATE) TABLET [Concomitant]

REACTIONS (1)
  - SHUNT OCCLUSION [None]
